FAERS Safety Report 25504318 (Version 1)
Quarter: 2025Q3

REPORT INFORMATION
  Report Type: Spontaneous
  Country: GB (occurrence: GB)
  Receive Date: 20250702
  Receipt Date: 20250702
  Transmission Date: 20251020
  Serious: Yes (Other)
  Sender: STEMLINE THERAPEUTICS
  Company Number: GB-STEMLINE THERAPEUTICS, INC-2025-STML-GB002261

PATIENT

DRUGS (1)
  1. ORSERDU [Suspect]
     Active Substance: ELACESTRANT
     Indication: Breast cancer
     Dosage: 345 MG, DAILY
     Route: 048
     Dates: start: 202506

REACTIONS (2)
  - Foreign body in throat [Unknown]
  - Dysphagia [Unknown]
